FAERS Safety Report 21895712 (Version 6)
Quarter: 2023Q2

REPORT INFORMATION
  Report Type: Report from Study
  Country: ES (occurrence: None)
  Receive Date: 20230123
  Receipt Date: 20230421
  Transmission Date: 20230722
  Serious: Yes (Hospitalization)
  Sender: FDA-Public Use
  Company Number: ES-ROCHE-3266842

PATIENT
  Age: 57 Year
  Sex: Female
  Weight: 46.3 kg

DRUGS (10)
  1. INVESTIGATIONAL PRODUCT [Suspect]
     Active Substance: INVESTIGATIONAL PRODUCT
     Indication: Pancreatic carcinoma metastatic
     Dosage: ON 16/JAN/2023 2:37 PM RECEIVED MOST RECENT DOSE OF RO7284755 6 MG PRIOR TO AE/SAE
     Route: 042
     Dates: start: 20230112
  2. ATEZOLIZUMAB [Suspect]
     Active Substance: ATEZOLIZUMAB
     Indication: Pancreatic carcinoma metastatic
     Dosage: ON 12/JAN/2023 1:00 PM RECEIVED MOST RECENT DOSE OF ATEZOLIZUMAB1200 MG PRIOR TO AE/SAE END AT 2:08
     Route: 041
     Dates: start: 20230112
  3. ACETAMINOPHEN [Concomitant]
     Active Substance: ACETAMINOPHEN
     Indication: Premedication
     Route: 042
     Dates: start: 20230116, end: 20230116
  4. CETIRIZINE [Concomitant]
     Active Substance: CETIRIZINE HYDROCHLORIDE
     Indication: Premedication
     Route: 048
     Dates: start: 20230116, end: 20230116
  5. METOCLOPRAMIDE [Concomitant]
     Active Substance: METOCLOPRAMIDE
     Indication: Premedication
     Route: 042
     Dates: start: 20230116, end: 20230116
  6. IBUPROFEN [Concomitant]
     Active Substance: IBUPROFEN
     Indication: Premedication
     Route: 048
     Dates: start: 20230116, end: 20230116
  7. URSODIOL [Concomitant]
     Active Substance: URSODIOL
     Indication: Hypercholesterolaemia
     Route: 048
     Dates: start: 202212
  8. PANCREATIN [Concomitant]
     Active Substance: PANCRELIPASE
     Route: 048
     Dates: start: 202108
  9. GEMCITABINE [Concomitant]
     Active Substance: GEMCITABINE
     Dates: start: 202210, end: 20221226
  10. PACLITAXEL [Concomitant]
     Active Substance: PACLITAXEL
     Dates: start: 202210, end: 20221226

REACTIONS (1)
  - Hyperbilirubinaemia [Recovered/Resolved]

NARRATIVE: CASE EVENT DATE: 20230117
